FAERS Safety Report 12603684 (Version 1)
Quarter: 2016Q3

REPORT INFORMATION
  Report Type: Spontaneous
  Country: IT (occurrence: IT)
  Receive Date: 20160728
  Receipt Date: 20160728
  Transmission Date: 20161109
  Serious: Yes (Hospitalization, Other)
  Sender: FDA-Public Use
  Company Number: IT-PFIZER INC-2016357858

PATIENT
  Age: 14 Year
  Sex: Female

DRUGS (4)
  1. TAVOR (LORAZEPAM) [Suspect]
     Active Substance: LORAZEPAM
     Indication: ANXIETY
     Dosage: 18.5 MG, TOTAL
     Route: 048
     Dates: start: 20160715, end: 20160715
  2. OLANZAPINE. [Concomitant]
     Active Substance: OLANZAPINE
     Indication: DECREASED APPETITE
     Dosage: 7.5 MG, UNK
     Route: 048
     Dates: start: 20140101
  3. DEPAKIN [Concomitant]
     Active Substance: VALPROATE SODIUM
     Indication: DECREASED APPETITE
     Dosage: UNK
     Route: 048
     Dates: start: 20140101
  4. FLUVOXAMINE [Concomitant]
     Active Substance: FLUVOXAMINE
     Indication: DECREASED APPETITE
     Dosage: UNK
     Route: 048
     Dates: start: 20140101

REACTIONS (3)
  - Intentional overdose [Recovered/Resolved]
  - Intentional self-injury [Recovered/Resolved]
  - Psychomotor retardation [Recovered/Resolved]

NARRATIVE: CASE EVENT DATE: 20160715
